FAERS Safety Report 5447586-6 (Version None)
Quarter: 2007Q3

REPORT INFORMATION
  Report Type: 
  Country: None (occurrence: None)
  Receive Date: 20070905
  Receipt Date: 20070905
  Transmission Date: 20080115
  Serious: Yes (Hospitalization)
  Sender: FDA-Public Use
  Company Number: None

PATIENT
  Age: 81 Year
  Sex: Female
  Weight: 52.8 kg

DRUGS (2)
  1. THEOPHYLLINE [Suspect]
     Indication: CHRONIC OBSTRUCTIVE PULMONARY DISEASE
     Dosage: 225MG Q6H PO
     Route: 048
     Dates: start: 20070628, end: 20070628
  2. THEOPHYLLINE [Suspect]
     Indication: CONDITION AGGRAVATED
     Dosage: 225MG Q6H PO
     Route: 048
     Dates: start: 20070628, end: 20070628

REACTIONS (1)
  - ATRIAL FIBRILLATION [None]
